FAERS Safety Report 20637802 (Version 2)
Quarter: 2022Q2

REPORT INFORMATION
  Report Type: Report from Study
  Country: US (occurrence: US)
  Receive Date: 20220325
  Receipt Date: 20220411
  Transmission Date: 20220720
  Serious: Yes (Death, Hospitalization, Other)
  Sender: FDA-Public Use
  Company Number: US-GLAXOSMITHKLINE-USCH2022AMR011153

PATIENT
  Age: 83 Year
  Sex: Male
  Weight: 88 kg

DRUGS (17)
  1. IBUPROFEN [Suspect]
     Active Substance: IBUPROFEN
     Indication: Pain
     Dosage: 1 DF, QD (600 MG)
     Route: 048
     Dates: end: 20220214
  2. LISOCABTAGENE MARALEUCEL [Suspect]
     Active Substance: LISOCABTAGENE MARALEUCEL
     Indication: Diffuse large B-cell lymphoma
     Dosage: 100 10 ^6 CAR+T CELLS, SINGLE
     Route: 042
     Dates: start: 20211104, end: 20211104
  3. CYCLOPHOSPHAMIDE [Suspect]
     Active Substance: CYCLOPHOSPHAMIDE
     Indication: Diffuse large B-cell lymphoma
     Dosage: 636 MG
     Route: 042
     Dates: start: 20211030, end: 20211030
  4. CYCLOPHOSPHAMIDE [Suspect]
     Active Substance: CYCLOPHOSPHAMIDE
     Dosage: 636 MG
     Route: 042
     Dates: start: 20211031, end: 20211031
  5. CYCLOPHOSPHAMIDE [Suspect]
     Active Substance: CYCLOPHOSPHAMIDE
     Dosage: 636 MG
     Route: 042
     Dates: start: 20211101, end: 20211101
  6. FLUDARABINE PHOSPHATE [Suspect]
     Active Substance: FLUDARABINE PHOSPHATE
     Indication: Diffuse large B-cell lymphoma
     Dosage: 63.75 MG
     Route: 042
     Dates: start: 20211030, end: 20211030
  7. FLUDARABINE PHOSPHATE [Suspect]
     Active Substance: FLUDARABINE PHOSPHATE
     Dosage: 63.75 MG
     Dates: start: 20211031, end: 20211031
  8. FLUDARABINE PHOSPHATE [Suspect]
     Active Substance: FLUDARABINE PHOSPHATE
     Dosage: 63.75 MG
     Dates: start: 20211101, end: 20211101
  9. XARELTO [Suspect]
     Active Substance: RIVAROXABAN
     Indication: Deep vein thrombosis
     Dosage: 1 DF, QD
     Route: 048
     Dates: start: 20201125
  10. XARELTO [Suspect]
     Active Substance: RIVAROXABAN
     Indication: Subclavian vein thrombosis
  11. CEFTRIAXONE [Suspect]
     Active Substance: CEFTRIAXONE
     Indication: Product used for unknown indication
     Dosage: UNK
     Dates: start: 20220217, end: 20220220
  12. CEFEPIME [Suspect]
     Active Substance: CEFEPIME HYDROCHLORIDE
     Indication: Product used for unknown indication
     Dosage: UNK
     Dates: start: 20220220
  13. ALLOPURINOL [Suspect]
     Active Substance: ALLOPURINOL
     Indication: Product used for unknown indication
     Dosage: 100 MG, QD
  14. FLOMAX [Concomitant]
     Active Substance: TAMSULOSIN HYDROCHLORIDE
     Indication: Benign prostatic hyperplasia
     Dosage: 0.4 MG, 1 IN 2 HOUR
     Route: 048
     Dates: start: 20200831
  15. FLOMAX [Concomitant]
     Active Substance: TAMSULOSIN HYDROCHLORIDE
     Indication: Deep vein thrombosis
  16. TRAMADOL [Concomitant]
     Active Substance: TRAMADOL
     Indication: Prophylaxis
     Dosage: 50 MG, 1 IN 6 HOURS
     Route: 048
     Dates: start: 20200831
  17. TRAMADOL [Concomitant]
     Active Substance: TRAMADOL
     Indication: Deep vein thrombosis

REACTIONS (17)
  - Death [Fatal]
  - Gastrointestinal haemorrhage [Recovered/Resolved]
  - Anaemia [Not Recovered/Not Resolved]
  - Thrombocytopenia [Not Recovered/Not Resolved]
  - COVID-19 [Not Recovered/Not Resolved]
  - Urinary tract infection [Recovered/Resolved]
  - Febrile neutropenia [Recovered/Resolved]
  - Neutropenia [Not Recovered/Not Resolved]
  - Aspartate aminotransferase increased [Recovered/Resolved]
  - Acute kidney injury [Not Recovered/Not Resolved]
  - Melaena [Recovered/Resolved]
  - Epistaxis [Unknown]
  - Nausea [Unknown]
  - Pancytopenia [Not Recovered/Not Resolved]
  - Blood bilirubin increased [Unknown]
  - Pneumonia [Unknown]
  - Laboratory test abnormal [Unknown]

NARRATIVE: CASE EVENT DATE: 20220206
